FAERS Safety Report 15102842 (Version 2)
Quarter: 2018Q4

REPORT INFORMATION
  Report Type: Spontaneous
  Country: US (occurrence: US)
  Receive Date: 20180703
  Receipt Date: 20181207
  Transmission Date: 20190204
  Serious: No
  Sender: FDA-Public Use
  Company Number: US-SA-2018SA174594

PATIENT
  Sex: Female
  Weight: 56 kg

DRUGS (9)
  1. MELATONIN [Concomitant]
     Active Substance: MELATONIN
  2. VITAMIN B12 [VITAMIN B12 NOS] [Concomitant]
  3. BRINTELLIX [Concomitant]
     Active Substance: VORTIOXETINE HYDROBROMIDE
  4. AUBAGIO [Suspect]
     Active Substance: TERIFLUNOMIDE
     Dosage: 14 UNK
     Route: 048
     Dates: start: 201811
  5. BIOTIN [Concomitant]
     Active Substance: BIOTIN
  6. MULTIVITAMINS [VITAMINS NOS] [Concomitant]
     Active Substance: VITAMINS
  7. VITAMIN D3 [Concomitant]
     Active Substance: CHOLECALCIFEROL
  8. WELLBUTRIN [Concomitant]
     Active Substance: BUPROPION HYDROCHLORIDE
  9. AUBAGIO [Suspect]
     Active Substance: TERIFLUNOMIDE
     Indication: MULTIPLE SCLEROSIS
     Dosage: 14 MG, QD
     Route: 048
     Dates: start: 201805

REACTIONS (5)
  - Apathy [Unknown]
  - Alopecia [Unknown]
  - Disturbance in attention [Unknown]
  - Decreased interest [Unknown]
  - Fatigue [Unknown]
